FAERS Safety Report 5197810-2 (Version None)
Quarter: 2006Q4

REPORT INFORMATION
  Report Type: 
  Country: None (occurrence: None)
  Receive Date: 20061228
  Receipt Date: 20060925
  Transmission Date: 20070319
  Serious: Yes (Life-Threatening, Other)
  Sender: FDA-Public Use
  Company Number: 2006SP002603

PATIENT
  Age: 60 Year
  Sex: Female
  Weight: 100 kg

DRUGS (2)
  1. REBETOL [Suspect]
     Indication: HEPATITIS C
     Dosage: 12000 MG, QD; PO
     Route: 048
     Dates: start: 20060601
  2. PEGASYS [Suspect]
     Indication: HEPATITIS C
     Dosage: 180 MCG; QW;
     Dates: start: 20060601

REACTIONS (7)
  - DRUG HYPERSENSITIVITY [None]
  - DRUG INEFFECTIVE [None]
  - ECZEMA [None]
  - FATIGUE [None]
  - INSOMNIA [None]
  - PAIN [None]
  - WEIGHT DECREASED [None]
